FAERS Safety Report 9113163 (Version 2)
Quarter: 2013Q2

REPORT INFORMATION
  Report Type: Spontaneous
  Country: AR (occurrence: AR)
  Receive Date: 20130211
  Receipt Date: 20130617
  Transmission Date: 20140414
  Serious: Yes (Other)
  Sender: FDA-Public Use
  Company Number: AR-AMGEN-ARGSP2013009212

PATIENT
  Age: 51 Year
  Sex: Male

DRUGS (5)
  1. ENBREL [Suspect]
     Indication: RHEUMATOID ARTHRITIS
     Dosage: 50 MG, WEEKLY
     Route: 058
     Dates: start: 20100502
  2. ASPIRINETTA [Concomitant]
     Indication: ANTIPHOSPHOLIPID SYNDROME
     Dosage: UNK
     Dates: start: 2001
  3. METHOTREXATE [Concomitant]
     Dosage: UNK
  4. DICLOFENAC [Concomitant]
     Dosage: UNK
  5. DELTISONA B                        /00049601/ [Concomitant]
     Dosage: UNK

REACTIONS (7)
  - Myocardial infarction [Recovered/Resolved]
  - Fall [Unknown]
  - Gait disturbance [Recovered/Resolved]
  - Patella fracture [Recovering/Resolving]
  - Tendon rupture [Recovering/Resolving]
  - Osteoporosis [Not Recovered/Not Resolved]
  - Chest pain [Recovered/Resolved]
